FAERS Safety Report 8320120-9 (Version None)
Quarter: 2012Q2

REPORT INFORMATION
  Report Type: 
  Country: None (occurrence: None)
  Receive Date: 20120430
  Receipt Date: 20120418
  Transmission Date: 20120825
  Serious: Yes (Other)
  Sender: FDA-Public Use
  Company Number: MX-BRISTOL-MYERS SQUIBB COMPANY-16538738

PATIENT
  Age: 80 Year
  Sex: Female
  Weight: 79 kg

DRUGS (3)
  1. ASPIRIN [Concomitant]
     Dosage: 1 DF:1 TABS OF ASPIRIN PROTECT 100MG TABS
     Route: 048
     Dates: start: 20080101
  2. IRBESARTAN AND HYDROCHLOROTHIAZIDE [Suspect]
     Indication: HYPERTENSION
     Dosage: 1 DF: 1 TABS OF COAPROVEL TABS 300MG/12.5MG
     Route: 048
     Dates: start: 20080101
  3. RAMIPRIL + FELODIPINE [Suspect]
     Indication: HYPERTENSION
     Dosage: 1 DF:1 TABS OF TRIACOR TABS 5MG
     Route: 048
     Dates: start: 20080101, end: 20120401

REACTIONS (2)
  - COUGH [None]
  - THYROID DISORDER [None]
